FAERS Safety Report 11948232 (Version 2)
Quarter: 2016Q1

REPORT INFORMATION
  Report Type: Report from Study
  Country: US (occurrence: US)
  Receive Date: 20160125
  Receipt Date: 20160202
  Transmission Date: 20160526
  Serious: Yes (Other)
  Sender: FDA-Public Use
  Company Number: PHEH2016US001713

PATIENT
  Age: 43 Year
  Sex: Female
  Weight: 82.86 kg

DRUGS (1)
  1. GILENYA [Suspect]
     Active Substance: FINGOLIMOD HYDROCHLORIDE
     Indication: MULTIPLE SCLEROSIS
     Dosage: 0.5 MG, QD
     Route: 048
     Dates: start: 20150507

REACTIONS (3)
  - Thrombosis [Unknown]
  - Pain in extremity [Unknown]
  - Abasia [Unknown]

NARRATIVE: CASE EVENT DATE: 20160117
